FAERS Safety Report 22161464 (Version 1)
Quarter: 2023Q1

REPORT INFORMATION
  Report Type: Spontaneous
  Country: RU (occurrence: RU)
  Receive Date: 20230331
  Receipt Date: 20230331
  Transmission Date: 20230418
  Serious: Yes (Life-Threatening, Other)
  Sender: FDA-Public Use
  Company Number: None

PATIENT
  Age: 6 Year
  Sex: Male
  Weight: 15 kg

DRUGS (5)
  1. ORKAMBI [Suspect]
     Active Substance: IVACAFTOR\LUMACAFTOR
     Indication: Cystic fibrosis
     Dosage: 1 SACHET (150 MG LUMACAFTOR/188 MG IVACAFTOR), BID
     Route: 048
     Dates: start: 20230227, end: 20230306
  2. TIGERASE [Concomitant]
     Indication: Cystic fibrosis
     Dosage: 2.5 ML, BID
     Dates: start: 20190221
  3. COLISTIN [Concomitant]
     Active Substance: COLISTIN
     Indication: Cystic fibrosis
     Dosage: 1000000 INTERNATIONAL UNIT, TID
     Dates: start: 20220411
  4. TOBRAMYCIN PSK [Concomitant]
     Indication: Cystic fibrosis
     Dosage: 4 ML (7.5%), BID
     Dates: start: 20220221
  5. CREON [Concomitant]
     Active Substance: PANCRELIPASE AMYLASE\PANCRELIPASE LIPASE\PANCRELIPASE PROTEASE
     Indication: Cystic fibrosis
     Dosage: 25 CAPSULES (10000 UG), QD
     Route: 048
     Dates: start: 20190221

REACTIONS (5)
  - Bronchial obstruction [Recovering/Resolving]
  - Dyspnoea exertional [Recovering/Resolving]
  - Tachypnoea [Recovering/Resolving]
  - Rales [Recovering/Resolving]
  - Rales [Recovering/Resolving]

NARRATIVE: CASE EVENT DATE: 20230304
